FAERS Safety Report 9217395 (Version 1)
Quarter: 2013Q2

REPORT INFORMATION
  Report Type: Spontaneous
  Country: US (occurrence: US)
  Receive Date: 20130408
  Receipt Date: 20130408
  Transmission Date: 20140414
  Serious: Yes (Other)
  Sender: FDA-Public Use
  Company Number: US-ROCHE-1208675

PATIENT
  Sex: Male

DRUGS (1)
  1. ZELBORAF [Suspect]
     Indication: MALIGNANT MELANOMA
     Dosage: FORM PILLS
     Route: 065

REACTIONS (6)
  - Depression [Unknown]
  - Acne [Recovered/Resolved]
  - Suicidal ideation [Unknown]
  - Hormone level abnormal [Unknown]
  - Depression [Recovered/Resolved]
  - Hormone level abnormal [Unknown]
